FAERS Safety Report 14304818 (Version 1)
Quarter: 2017Q4

REPORT INFORMATION
  Report Type: Report from Study
  Country: JP (occurrence: JP)
  Receive Date: 20171219
  Receipt Date: 20171219
  Transmission Date: 20180321
  Serious: Yes (Other)
  Sender: FDA-Public Use
  Company Number: JP-OTSUKA-03100-JPN-07-0493

PATIENT
  Age: 52 Year
  Sex: Male

DRUGS (31)
  1. ISOMYTAL [Concomitant]
     Active Substance: AMOBARBITAL SODIUM
     Indication: SCHIZOPHRENIA
     Dosage: 0.1 G, QD
     Route: 048
     Dates: start: 20061117
  2. DORAL [Concomitant]
     Active Substance: QUAZEPAM
     Indication: INSOMNIA
  3. VALERIN [Concomitant]
     Active Substance: VALPROATE SODIUM
     Indication: MOOD ALTERED
  4. FAMOTIDINE. [Concomitant]
     Active Substance: FAMOTIDINE
     Indication: CHRONIC GASTRITIS
     Dosage: 20 MG, UNK
     Route: 048
     Dates: start: 20061117, end: 20070612
  5. ARIPIPRAZOLE. [Suspect]
     Active Substance: ARIPIPRAZOLE
     Dosage: 3 MG, QD
     Route: 048
     Dates: start: 20070323, end: 20070501
  6. ARIPIPRAZOLE. [Suspect]
     Active Substance: ARIPIPRAZOLE
     Dosage: 9 MG, BID
     Route: 048
     Dates: start: 20070613, end: 20070821
  7. YODEL [Concomitant]
     Active Substance: SENNA LEAF
     Indication: CONSTIPATION
     Dosage: 80 MG, QD
     Route: 048
     Dates: start: 20070321
  8. RISPERDAL [Concomitant]
     Active Substance: RISPERIDONE
     Indication: SCHIZOPHRENIA
     Dosage: 6 MG, QD
     Route: 048
     Dates: start: 20070404
  9. FLUNITRAZEPAM [Concomitant]
     Active Substance: FLUNITRAZEPAM
     Indication: SCHIZOPHRENIA
     Dosage: 2 MG, UNK
     Route: 048
     Dates: start: 20061117, end: 20070520
  10. GASTER [Concomitant]
     Active Substance: FAMOTIDINE
     Indication: CHRONIC GASTRITIS
     Dosage: 20 MG, QD
     Route: 048
     Dates: start: 20061117, end: 20070612
  11. BENZALIN [Concomitant]
     Active Substance: NITRAZEPAM
     Indication: INSOMNIA
  12. VALERIN [Concomitant]
     Active Substance: VALPROATE SODIUM
     Indication: SCHIZOPHRENIA
     Dosage: 400 MG, QD
     Route: 048
     Dates: start: 20080305
  13. SENNA [Concomitant]
     Active Substance: SENNA LEAF\SENNOSIDES\SENNOSIDES A AND B
     Indication: CONSTIPATION
     Dosage: 80 MG, UNK
     Route: 048
     Dates: start: 20070321
  14. ARIPIPRAZOLE. [Suspect]
     Active Substance: ARIPIPRAZOLE
     Indication: SCHIZOPHRENIA
     Dosage: 6 MG, QD
     Route: 048
     Dates: start: 20070302, end: 20070322
  15. MUCOSTA TABLETS 100MG [Concomitant]
     Active Substance: REBAMIPIDE
     Indication: CHRONIC GASTRITIS
     Dosage: 200 MG, QD
     Route: 048
     Dates: start: 20070613, end: 20070914
  16. WYPAX [Concomitant]
     Active Substance: LORAZEPAM
     Indication: SCHIZOPHRENIA
     Dosage: 3 MG, QD
     Route: 048
     Dates: start: 20070404, end: 20070807
  17. DORAL [Concomitant]
     Active Substance: QUAZEPAM
     Indication: SCHIZOPHRENIA
     Dosage: 15 MG, QD
     Route: 048
     Dates: start: 20070612
  18. LORAZEPAM. [Concomitant]
     Active Substance: LORAZEPAM
     Indication: SCHIZOPHRENIA
     Dosage: 3 MG, UNK
     Route: 048
     Dates: start: 20070404
  19. ARIPIPRAZOLE. [Suspect]
     Active Substance: ARIPIPRAZOLE
     Dosage: 12 MG, BID
     Route: 048
     Dates: start: 20070822
  20. ROHYPNOL [Concomitant]
     Active Substance: FLUNITRAZEPAM
     Indication: SCHIZOPHRENIA
     Dosage: 2 MG, QD
     Route: 048
     Dates: start: 20061117, end: 20070520
  21. DEPAS [Concomitant]
     Active Substance: ETIZOLAM
     Indication: INSOMNIA
  22. ARIPIPRAZOLE. [Suspect]
     Active Substance: ARIPIPRAZOLE
     Dosage: 6 MG, BID
     Route: 048
     Dates: start: 20070502, end: 20070612
  23. FLUMEZIN [Concomitant]
     Indication: SCHIZOPHRENIA
     Dosage: 3 MG, QD
     Route: 048
     Dates: start: 20061117, end: 20070612
  24. SENIRAN [Concomitant]
     Active Substance: BROMAZEPAM
     Indication: SCHIZOPHRENIA
     Dosage: 6 MG, QD
     Route: 048
     Dates: start: 20061117
  25. ISOMYTAL [Concomitant]
     Active Substance: AMOBARBITAL SODIUM
     Indication: INSOMNIA
  26. LODOPIN [Concomitant]
     Active Substance: ZOTEPINE
     Indication: SCHIZOPHRENIA
     Dosage: 100 MG, QD
     Route: 048
     Dates: start: 20070612, end: 20080304
  27. FLUPHENAZINE DECANOATE. [Concomitant]
     Active Substance: FLUPHENAZINE DECANOATE
     Indication: SCHIZOPHRENIA
     Dosage: 3 MG, UNK
     Route: 048
     Dates: start: 20061117, end: 20070612
  28. BENZALIN [Concomitant]
     Active Substance: NITRAZEPAM
     Indication: SCHIZOPHRENIA
     Dosage: 10 MG, QD
     Route: 048
     Dates: start: 20061117
  29. ROHYPNOL [Concomitant]
     Active Substance: FLUNITRAZEPAM
     Indication: INSOMNIA
  30. DEPAS [Concomitant]
     Active Substance: ETIZOLAM
     Indication: SCHIZOPHRENIA
     Dosage: 0.4 MG, QD
     Route: 048
     Dates: start: 20061117
  31. WYPAX [Concomitant]
     Active Substance: LORAZEPAM
     Indication: PROPHYLAXIS
     Dosage: 2 MG, QD
     Route: 048
     Dates: start: 20070808

REACTIONS (8)
  - Soliloquy [Not Recovered/Not Resolved]
  - Delusion [Recovering/Resolving]
  - Inappropriate affect [Not Recovered/Not Resolved]
  - Anger [Recovering/Resolving]
  - Autonomic nervous system imbalance [Recovered/Resolved]
  - Incoherent [Recovering/Resolving]
  - Restlessness [Recovering/Resolving]
  - Abnormal behaviour [Not Recovered/Not Resolved]

NARRATIVE: CASE EVENT DATE: 20070315
